FAERS Safety Report 4357656-1 (Version None)
Quarter: 2004Q2

REPORT INFORMATION
  Report Type: 
  Country: None (occurrence: None)
  Receive Date: 20040513
  Receipt Date: 20040227
  Transmission Date: 20050107
  Serious: Yes (Hospitalization, Disabling)
  Sender: FDA-Public Use
  Company Number: DE-MERCK-0402DEU00173

PATIENT
  Age: 60 Year
  Sex: Female
  Weight: 59 kg

DRUGS (3)
  1. VIOXX [Suspect]
     Indication: LOCALISED OSTEOARTHRITIS
     Route: 048
     Dates: start: 20030101, end: 20030101
  2. VIOXX [Suspect]
     Route: 048
     Dates: start: 20031120, end: 20031125
  3. TIBOLONE [Concomitant]
     Route: 048
     Dates: start: 20000101

REACTIONS (3)
  - CATARACT [None]
  - MACULAR OEDEMA [None]
  - VISUAL DISTURBANCE [None]
